FAERS Safety Report 4525632-1 (Version None)
Quarter: 2004Q4

REPORT INFORMATION
  Report Type: 
  Country: None (occurrence: None)
  Receive Date: 20041116
  Receipt Date: 20040806
  Transmission Date: 20050328
  Serious: No
  Sender: FDA-Public Use
  Company Number: S04-USA-05881-01

PATIENT
  Age: 83 Year
  Sex: Female
  Weight: 70.3075 kg

DRUGS (13)
  1. NAMENDA [Suspect]
     Indication: DEMENTIA ALZHEIMER'S TYPE
     Dosage: 10 MG BID PO
     Route: 048
     Dates: start: 20040526, end: 20040604
  2. NAMENDA [Suspect]
     Indication: DEMENTIA
     Dosage: 5 MG QD PO
     Route: 048
     Dates: start: 20040505, end: 20040511
  3. NAMENDA [Suspect]
     Indication: DEMENTIA
     Dosage: 5 MG BID PO
     Route: 048
     Dates: start: 20040512, end: 20040518
  4. NAMENDA [Suspect]
     Indication: DEMENTIA
     Dosage: 15 MG QD PO
     Route: 048
     Dates: start: 20040509, end: 20040525
  5. CALCIUM CARBONATE [Concomitant]
  6. COLACE (DOCUSATE SODIUM) [Concomitant]
  7. TRIAMTERENE AND HYDROCHLOROTHIAZIDE [Concomitant]
  8. ASCORBIC ACID [Concomitant]
  9. SYNTHROID (LEVOTHYROXINE SOIDUM) [Concomitant]
  10. ARICEPT [Concomitant]
  11. SEROQUEL [Concomitant]
  12. PEPCID [Concomitant]
  13. POTASSIUM CHLORIDE [Concomitant]

REACTIONS (3)
  - DECREASED APPETITE [None]
  - IRRITABILITY [None]
  - WEIGHT DECREASED [None]
